FAERS Safety Report 20167147 (Version 1)
Quarter: 2021Q4

REPORT INFORMATION
  Report Type: Spontaneous
  Country: US (occurrence: None)
  Receive Date: 20211208
  Receipt Date: 20211208
  Transmission Date: 20220304
  Serious: Yes (Disabling)
  Sender: FDA-Public Use
  Company Number: None

PATIENT
  Age: 76 Year
  Sex: Male
  Weight: 81 kg

DRUGS (20)
  1. COSENTYX [Suspect]
     Active Substance: SECUKINUMAB
     Indication: Ankylosing spondylitis
     Dosage: OTHER QUANTITY : 1 INJECTION(S);?OTHER FREQUENCY : MONTHLY;?
     Route: 058
     Dates: start: 20200204, end: 20211203
  2. VALSARTAN [Concomitant]
     Active Substance: VALSARTAN
  3. MIRTAZAPINE [Concomitant]
     Active Substance: MIRTAZAPINE
  4. LAMOTRIGINE [Concomitant]
     Active Substance: LAMOTRIGINE
  5. LORAZEPAM [Concomitant]
     Active Substance: LORAZEPAM
  6. ZOLPIDEM [Concomitant]
     Active Substance: ZOLPIDEM TARTRATE
  7. TRAZODONE [Concomitant]
     Active Substance: TRAZODONE HYDROCHLORIDE
  8. Refresh GEL FOR EYES [Concomitant]
  9. DIETARY SUPPLEMENT [Concomitant]
     Active Substance: DIETARY SUPPLEMENT
  10. MELATONIN [Concomitant]
     Active Substance: MELATONIN
  11. DICLOFENAC [Concomitant]
     Active Substance: DICLOFENAC
  12. BIOFREEZE [Concomitant]
     Active Substance: MENTHOL
  13. inositol POWDER [Concomitant]
  14. VITAMINS [Concomitant]
     Active Substance: VITAMINS
  15. MIRALAX [Concomitant]
     Active Substance: POLYETHYLENE GLYCOL 3350
  16. psyllium POWDER [Concomitant]
  17. VITAMIN D NOS [Concomitant]
     Active Substance: VITAMIN D NOS
  18. KRILL OIL [Concomitant]
     Active Substance: DIETARY SUPPLEMENT\KRILL OIL
  19. MAGNESIUM GLYCINATE [Concomitant]
     Active Substance: MAGNESIUM GLYCINATE
  20. shikai CBD body lotion [Concomitant]

REACTIONS (3)
  - Tinnitus [None]
  - Quality of life decreased [None]
  - Pain [None]

NARRATIVE: CASE EVENT DATE: 20200403
